FAERS Safety Report 5925261-9 (Version None)
Quarter: 2008Q4

REPORT INFORMATION
  Report Type: 
  Country: None (occurrence: None)
  Receive Date: 20081021
  Receipt Date: 20081014
  Transmission Date: 20090506
  Serious: Yes (Other)
  Sender: FDA-Public Use
  Company Number: US-PURDUE-USA_2008_0035448

PATIENT
  Age: 63 Year
  Sex: Male

DRUGS (2)
  1. OXYCONTIN [Suspect]
     Indication: DRUG USE FOR UNKNOWN INDICATION
     Dosage: 260 TABLET, UNK
  2. ALCOHOL                            /00002101/ [Suspect]
     Indication: DRUG USE FOR UNKNOWN INDICATION

REACTIONS (7)
  - ALCOHOLISM [None]
  - AMNESIA [None]
  - ARTHRALGIA [None]
  - DRUG TOXICITY [None]
  - FALL [None]
  - HOMICIDAL IDEATION [None]
  - SUICIDAL BEHAVIOUR [None]
